FAERS Safety Report 7235826-2 (Version None)
Quarter: 2011Q1

REPORT INFORMATION
  Report Type: 
  Country: None (occurrence: None)
  Receive Date: 20110120
  Receipt Date: 20110111
  Transmission Date: 20110831
  Serious: Yes (Life-Threatening)
  Sender: FDA-Public Use
  Company Number: JP-ROCHE-728306

PATIENT
  Sex: Female

DRUGS (2)
  1. PEGASYS [Suspect]
     Route: 058
     Dates: start: 20080722, end: 20080722
  2. COPEGUS [Suspect]
     Route: 048
     Dates: start: 20080722, end: 20080729

REACTIONS (3)
  - MUCOSAL ATROPHY [None]
  - HELICOBACTER INFECTION [None]
  - PLATELET COUNT DECREASED [None]
